FAERS Safety Report 13369976 (Version 5)
Quarter: 2017Q3

REPORT INFORMATION
  Report Type: Spontaneous
  Country: US (occurrence: US)
  Receive Date: 20170324
  Receipt Date: 20170918
  Transmission Date: 20171127
  Serious: Yes (Hospitalization, Other)
  Sender: FDA-Public Use
  Company Number: US-PFIZER INC-2017124342

PATIENT
  Age: 44 Year
  Sex: Female
  Weight: 63 kg

DRUGS (21)
  1. LEVAQUIN [Concomitant]
     Active Substance: LEVOFLOXACIN
     Dosage: 750 MG, 1X/DAY (MORNING)
     Route: 048
  2. PEPCID [Concomitant]
     Active Substance: FAMOTIDINE
     Indication: DYSPEPSIA
     Dosage: 20 MG, AS NEEDED TWO TIMES DAILY
     Route: 048
  3. ZOFRAN [Concomitant]
     Active Substance: ONDANSETRON HYDROCHLORIDE
     Indication: NAUSEA
     Dosage: 8 MG, AS NEEDED (EVERY 8 HOURS)
     Route: 048
  4. LACTULOSE. [Concomitant]
     Active Substance: LACTULOSE
     Dosage: 20 G, 4X/DAY (MORNING, NOON, EVENING, BEDTIME)
     Route: 048
  5. MAG-OX [Concomitant]
     Active Substance: MAGNESIUM OXIDE
     Dosage: 400 MG, 2X/DAY (WITH MEALS: MORNING, EVENING)
     Route: 048
  6. TOPROL XL [Concomitant]
     Active Substance: METOPROLOL SUCCINATE
     Dosage: 12.5 MG, 2X/DAY (MORNING, EVENING)
     Route: 048
  7. ALBUTEROL HFA [Concomitant]
     Active Substance: ALBUTEROL SULFATE
     Indication: WHEEZING
     Dosage: 2 DF (2 PUFFS INTO THE LUNGS EVERY 6 HOURS AS NEEDED), AS NEEDED
  8. AROMASIN [Suspect]
     Active Substance: EXEMESTANE
     Indication: BREAST CANCER
     Dosage: 25 MG, 1X/DAY (MORNING)
     Route: 048
     Dates: start: 2016
  9. VENTOLIN [Concomitant]
     Active Substance: ALBUTEROL SULFATE
     Indication: WHEEZING
     Dosage: 2 DF, AS NEEDED EVERY SIX HOURS
     Route: 055
  10. NEURONTIN [Concomitant]
     Active Substance: GABAPENTIN
     Dosage: 300 MG, 3X/DAY (MORNING, NOON, EVENING)
     Route: 048
  11. RISPERDAL [Concomitant]
     Active Substance: RISPERIDONE
     Dosage: 1 MG, 1X/DAY (NIGHTLY: BED TIME)
     Route: 048
  12. AROMASIN [Suspect]
     Active Substance: EXEMESTANE
     Dosage: UNK
     Route: 048
  13. FOLVITE [Concomitant]
     Active Substance: FOLIC ACID
     Dosage: 1 MG, 1X/DAY (MORNING)
     Route: 048
  14. VITAMIN B12 [Concomitant]
     Active Substance: CYANOCOBALAMIN
     Dosage: 1000 UG, 1X/DAY (MORNING)
     Route: 048
  15. VIBRAMYCIN [Concomitant]
     Active Substance: DOXYCYCLINE
     Dosage: 100 MG, 2X/DAY (FOR 7 DAYS)
     Route: 048
  16. AROMASIN [Suspect]
     Active Substance: EXEMESTANE
     Dosage: 25 MG, DAILY
     Route: 048
  17. PROAIR HFA [Concomitant]
     Active Substance: ALBUTEROL SULFATE
     Indication: WHEEZING
     Dosage: 2 DF, AS NEEDED EVERY SIX HOURS
     Route: 055
  18. CYMBALTA [Concomitant]
     Active Substance: DULOXETINE HYDROCHLORIDE
     Dosage: 90 MG, 1X/DAY (MORNING)
     Route: 048
  19. ALDACTONE [Concomitant]
     Active Substance: SPIRONOLACTONE
     Dosage: 25 MG, 1X/DAY (MORNING)
     Route: 048
  20. VITAMIN B1 [Concomitant]
     Active Substance: THIAMINE HYDROCHLORIDE
     Dosage: 100 MG, 1X/DAY (MORNING)
     Route: 048
  21. THERAGRAN [Concomitant]
     Active Substance: VITAMINS
     Dosage: 1 DF, DAILY (MORNING)
     Route: 048

REACTIONS (6)
  - Cardiac disorder [Recovered/Resolved]
  - Myocardial infarction [Recovered/Resolved]
  - Breast mass [Recovered/Resolved]
  - Dyspnoea [Recovered/Resolved]
  - Pneumonia [Recovered/Resolved]
  - Pancreatitis relapsing [Recovered/Resolved]

NARRATIVE: CASE EVENT DATE: 201703
